FAERS Safety Report 8479400-9 (Version None)
Quarter: 2012Q2

REPORT INFORMATION
  Report Type: 
  Country: None (occurrence: None)
  Receive Date: 20120629
  Receipt Date: 20120619
  Transmission Date: 20120825
  Serious: Yes (Death, Hospitalization)
  Sender: FDA-Public Use
  Company Number: DE-BRISTOL-MYERS SQUIBB COMPANY-16709826

PATIENT
  Age: 69 Year
  Sex: Female
  Weight: 57 kg

DRUGS (6)
  1. PLAVIX [Concomitant]
     Indication: THROMBOSIS PROPHYLAXIS
     Dosage: 1DF=75(UNITS NO.S).
     Dates: start: 20070515
  2. AMLODIPINE [Concomitant]
     Indication: HYPERTENSION
     Dosage: 1DF=10 MG.
     Dates: start: 20070515
  3. PANTOPRAZOLE [Concomitant]
     Indication: PROPHYLAXIS AGAINST GASTROINTESTINAL ULCER
     Dosage: 1DF=40(UNITS NO.S).
     Dates: start: 20110317
  4. CETUXIMAB [Suspect]
     Indication: HEAD AND NECK CANCER
     Route: 042
     Dates: start: 20120606
  5. CISPLATIN [Suspect]
     Indication: HEAD AND NECK CANCER
     Route: 042
     Dates: start: 20120606
  6. FLUOROURACIL [Suspect]
     Indication: HEAD AND NECK CANCER
     Route: 042
     Dates: start: 20120606

REACTIONS (1)
  - FEBRILE NEUTROPENIA [None]
